FAERS Safety Report 5678062-3 (Version None)
Quarter: 2008Q1

REPORT INFORMATION
  Report Type: 
  Country: None (occurrence: None)
  Receive Date: 20080320
  Receipt Date: 20080305
  Transmission Date: 20080703
  Serious: Yes (Other)
  Sender: FDA-Public Use
  Company Number: JPI-P-000915

PATIENT
  Age: 36 Year
  Sex: Female

DRUGS (55)
  1. XYREM [Suspect]
     Indication: APHASIA
     Dosage: SEE IMAGE
     Route: 048
     Dates: start: 20061027, end: 20061109
  2. XYREM [Suspect]
     Indication: NARCOLEPSY
     Dosage: SEE IMAGE
     Route: 048
     Dates: start: 20061027, end: 20061109
  3. XYREM [Suspect]
     Indication: APHASIA
     Dosage: SEE IMAGE
     Route: 048
     Dates: start: 20061110, end: 20061110
  4. XYREM [Suspect]
     Indication: NARCOLEPSY
     Dosage: SEE IMAGE
     Route: 048
     Dates: start: 20061110, end: 20061110
  5. XYREM [Suspect]
     Indication: APHASIA
     Dosage: SEE IMAGE
     Route: 048
     Dates: start: 20061110, end: 20061110
  6. XYREM [Suspect]
     Indication: NARCOLEPSY
     Dosage: SEE IMAGE
     Route: 048
     Dates: start: 20061110, end: 20061110
  7. XYREM [Suspect]
     Indication: APHASIA
     Dosage: SEE IMAGE
     Route: 048
     Dates: start: 20061111, end: 20061111
  8. XYREM [Suspect]
     Indication: NARCOLEPSY
     Dosage: SEE IMAGE
     Route: 048
     Dates: start: 20061111, end: 20061111
  9. XYREM [Suspect]
     Indication: APHASIA
     Dosage: SEE IMAGE
     Route: 048
     Dates: start: 20061112, end: 20061113
  10. XYREM [Suspect]
     Indication: NARCOLEPSY
     Dosage: SEE IMAGE
     Route: 048
     Dates: start: 20061112, end: 20061113
  11. XYREM [Suspect]
     Indication: APHASIA
     Dosage: SEE IMAGE
     Route: 048
     Dates: start: 20061112, end: 20061113
  12. XYREM [Suspect]
     Indication: NARCOLEPSY
     Dosage: SEE IMAGE
     Route: 048
     Dates: start: 20061112, end: 20061113
  13. XYREM [Suspect]
     Indication: APHASIA
     Dosage: SEE IMAGE
     Route: 048
     Dates: start: 20061114, end: 20061119
  14. XYREM [Suspect]
     Indication: NARCOLEPSY
     Dosage: SEE IMAGE
     Route: 048
     Dates: start: 20061114, end: 20061119
  15. XYREM [Suspect]
     Indication: APHASIA
     Dosage: SEE IMAGE
     Route: 048
     Dates: start: 20061120, end: 20061122
  16. XYREM [Suspect]
     Indication: NARCOLEPSY
     Dosage: SEE IMAGE
     Route: 048
     Dates: start: 20061120, end: 20061122
  17. XYREM [Suspect]
     Indication: APHASIA
     Dosage: SEE IMAGE
     Route: 048
     Dates: start: 20061123, end: 20061126
  18. XYREM [Suspect]
     Indication: NARCOLEPSY
     Dosage: SEE IMAGE
     Route: 048
     Dates: start: 20061123, end: 20061126
  19. XYREM [Suspect]
     Indication: APHASIA
     Dosage: SEE IMAGE
     Route: 048
     Dates: start: 20061123, end: 20061126
  20. XYREM [Suspect]
     Indication: NARCOLEPSY
     Dosage: SEE IMAGE
     Route: 048
     Dates: start: 20061123, end: 20061126
  21. XYREM [Suspect]
     Indication: APHASIA
     Dosage: SEE IMAGE
     Route: 048
     Dates: start: 20061127, end: 20061130
  22. XYREM [Suspect]
     Indication: NARCOLEPSY
     Dosage: SEE IMAGE
     Route: 048
     Dates: start: 20061127, end: 20061130
  23. XYREM [Suspect]
     Indication: APHASIA
     Dosage: SEE IMAGE
     Route: 048
     Dates: start: 20061201, end: 20061205
  24. XYREM [Suspect]
     Indication: NARCOLEPSY
     Dosage: SEE IMAGE
     Route: 048
     Dates: start: 20061201, end: 20061205
  25. XYREM [Suspect]
     Indication: APHASIA
     Dosage: SEE IMAGE
     Route: 048
     Dates: start: 20061206, end: 20061220
  26. XYREM [Suspect]
     Indication: NARCOLEPSY
     Dosage: SEE IMAGE
     Route: 048
     Dates: start: 20061206, end: 20061220
  27. XYREM [Suspect]
     Indication: APHASIA
     Dosage: SEE IMAGE
     Route: 048
     Dates: start: 20061221, end: 20070111
  28. XYREM [Suspect]
     Indication: NARCOLEPSY
     Dosage: SEE IMAGE
     Route: 048
     Dates: start: 20061221, end: 20070111
  29. XYREM [Suspect]
     Indication: APHASIA
     Dosage: SEE IMAGE
     Route: 048
     Dates: start: 20070112, end: 20070124
  30. XYREM [Suspect]
     Indication: NARCOLEPSY
     Dosage: SEE IMAGE
     Route: 048
     Dates: start: 20070112, end: 20070124
  31. XYREM [Suspect]
     Indication: APHASIA
     Dosage: SEE IMAGE
     Route: 048
     Dates: start: 20070125, end: 20070523
  32. XYREM [Suspect]
     Indication: NARCOLEPSY
     Dosage: SEE IMAGE
     Route: 048
     Dates: start: 20070125, end: 20070523
  33. XYREM [Suspect]
     Indication: APHASIA
     Dosage: SEE IMAGE
     Route: 048
     Dates: start: 20070524, end: 20070524
  34. XYREM [Suspect]
     Indication: NARCOLEPSY
     Dosage: SEE IMAGE
     Route: 048
     Dates: start: 20070524, end: 20070524
  35. XYREM [Suspect]
     Indication: APHASIA
     Dosage: SEE IMAGE
     Route: 048
     Dates: start: 20070525, end: 20070528
  36. XYREM [Suspect]
     Indication: NARCOLEPSY
     Dosage: SEE IMAGE
     Route: 048
     Dates: start: 20070525, end: 20070528
  37. XYREM [Suspect]
     Indication: APHASIA
     Dosage: SEE IMAGE
     Route: 048
     Dates: start: 20070529, end: 20070604
  38. XYREM [Suspect]
     Indication: NARCOLEPSY
     Dosage: SEE IMAGE
     Route: 048
     Dates: start: 20070529, end: 20070604
  39. XYREM [Suspect]
     Indication: APHASIA
     Dosage: SEE IMAGE
     Route: 048
     Dates: start: 20070605, end: 20070609
  40. XYREM [Suspect]
     Indication: NARCOLEPSY
     Dosage: SEE IMAGE
     Route: 048
     Dates: start: 20070605, end: 20070609
  41. XYREM [Suspect]
     Indication: APHASIA
     Dosage: SEE IMAGE
     Route: 048
     Dates: start: 20070610, end: 20070614
  42. XYREM [Suspect]
     Indication: NARCOLEPSY
     Dosage: SEE IMAGE
     Route: 048
     Dates: start: 20070610, end: 20070614
  43. XYREM [Suspect]
     Indication: APHASIA
     Dosage: SEE IMAGE
     Route: 048
     Dates: start: 20070615, end: 20070617
  44. XYREM [Suspect]
     Indication: NARCOLEPSY
     Dosage: SEE IMAGE
     Route: 048
     Dates: start: 20070615, end: 20070617
  45. XYREM [Suspect]
     Indication: APHASIA
     Dosage: SEE IMAGE
     Route: 048
     Dates: start: 20070618, end: 20070630
  46. XYREM [Suspect]
     Indication: NARCOLEPSY
     Dosage: SEE IMAGE
     Route: 048
     Dates: start: 20070618, end: 20070630
  47. XYREM [Suspect]
     Indication: APHASIA
     Dosage: SEE IMAGE
     Route: 048
     Dates: start: 20070701, end: 20070707
  48. XYREM [Suspect]
     Indication: NARCOLEPSY
     Dosage: SEE IMAGE
     Route: 048
     Dates: start: 20070701, end: 20070707
  49. XYREM [Suspect]
     Indication: APHASIA
     Dosage: SEE IMAGE
     Route: 048
     Dates: start: 20070708, end: 20070722
  50. XYREM [Suspect]
     Indication: NARCOLEPSY
     Dosage: SEE IMAGE
     Route: 048
     Dates: start: 20070708, end: 20070722
  51. XYREM [Suspect]
     Indication: APHASIA
     Dosage: SEE IMAGE
     Route: 048
     Dates: start: 20070723, end: 20070809
  52. XYREM [Suspect]
     Indication: NARCOLEPSY
     Dosage: SEE IMAGE
     Route: 048
     Dates: start: 20070723, end: 20070809
  53. XYREM [Suspect]
     Indication: APHASIA
     Dosage: SEE IMAGE
     Route: 048
     Dates: start: 20070810
  54. XYREM [Suspect]
     Indication: NARCOLEPSY
     Dosage: SEE IMAGE
     Route: 048
     Dates: start: 20070810
  55. MODAFINIL [Concomitant]

REACTIONS (30)
  - AGGRESSION [None]
  - ANXIETY [None]
  - ARTHRALGIA [None]
  - ASTHENIA [None]
  - BONE PAIN [None]
  - CATAPLEXY [None]
  - CHEST DISCOMFORT [None]
  - CONVERSION DISORDER [None]
  - CRYING [None]
  - DYSPNOEA [None]
  - ENURESIS [None]
  - FATIGUE [None]
  - FEELING HOT [None]
  - HEADACHE [None]
  - HYPERHIDROSIS [None]
  - INSOMNIA [None]
  - MIDDLE INSOMNIA [None]
  - MONOPLEGIA [None]
  - MYALGIA [None]
  - NAUSEA [None]
  - NERVOUSNESS [None]
  - NIGHT SWEATS [None]
  - NIGHTMARE [None]
  - PALPITATIONS [None]
  - PARAESTHESIA [None]
  - SOMNOLENCE [None]
  - SUICIDAL IDEATION [None]
  - TREMOR [None]
  - VERTIGO [None]
  - VISUAL DISTURBANCE [None]
